FAERS Safety Report 5391483-1 (Version None)
Quarter: 2007Q3

REPORT INFORMATION
  Report Type: 
  Country: None (occurrence: None)
  Receive Date: 20070719
  Receipt Date: 20070710
  Transmission Date: 20080115
  Serious: Yes (Hospitalization)
  Sender: FDA-Public Use
  Company Number: IT-AMGEN-US234505

PATIENT
  Sex: Male

DRUGS (4)
  1. ENBREL [Suspect]
     Indication: RHEUMATOID ARTHRITIS
     Dosage: 25MG CYCLE
     Route: 058
     Dates: start: 20030908, end: 20070514
  2. DELTACORTENE [Concomitant]
     Dosage: NOT REPORTED
  3. ORUDIS E [Concomitant]
     Dosage: NOT REPORTED
  4. ARAVA [Concomitant]
     Dosage: NOT REPORTED

REACTIONS (2)
  - BILIARY COLIC [None]
  - EMPYEMA [None]
